FAERS Safety Report 14519969 (Version 1)
Quarter: 2018Q1

REPORT INFORMATION
  Report Type: Report from Study
  Country: GB (occurrence: GB)
  Receive Date: 20180212
  Receipt Date: 20180212
  Transmission Date: 20180509
  Serious: Yes (Other)
  Sender: FDA-Public Use
  Company Number: PHHY2018GB020554

PATIENT
  Age: 89 Year
  Sex: Female

DRUGS (1)
  1. APRACLONIDINE [Suspect]
     Active Substance: APRACLONIDINE HYDROCHLORIDE
     Indication: GLAUCOMA
     Dosage: LEFT EYE
     Route: 065

REACTIONS (8)
  - Drug ineffective [Unknown]
  - Visual field defect [Not Recovered/Not Resolved]
  - Dry eye [Unknown]
  - Ocular discomfort [Unknown]
  - Trichiasis [Unknown]
  - Retinal pigment epitheliopathy [Unknown]
  - Flat anterior chamber of eye [Unknown]
  - Symblepharon [Unknown]
